FAERS Safety Report 7863269-7 (Version None)
Quarter: 2011Q4

REPORT INFORMATION
  Report Type: 
  Country: None (occurrence: None)
  Receive Date: 20111027
  Receipt Date: 20101201
  Transmission Date: 20120403
  Serious: No
  Sender: FDA-Public Use
  Company Number: US-AMGEN-USASP2010001996

PATIENT
  Age: 58 Year
  Sex: Female
  Weight: 87.982 kg

DRUGS (15)
  1. PERCOCET [Concomitant]
     Dosage: UNK UNK, PRN
     Route: 048
  2. FOLIC ACID [Concomitant]
     Dosage: 1 MG, UNK
     Route: 048
  3. ACTONEL [Concomitant]
     Dosage: 150 MG, QMO
     Route: 048
  4. NEURONTIN [Concomitant]
     Dosage: 400 MG, QID
     Route: 048
  5. DIAZEPAM [Concomitant]
     Dosage: 5 MG, PRN
     Route: 048
  6. EXFORGE                            /02626001/ [Concomitant]
     Dosage: 5 MG, QD
     Route: 048
  7. SKELAXIN [Concomitant]
     Dosage: 800 MG, TID
     Route: 048
  8. LAMISIL                            /00992601/ [Concomitant]
     Dosage: UNK UNK, QD
     Route: 061
  9. ENBREL [Suspect]
     Indication: RHEUMATOID ARTHRITIS
     Route: 058
     Dates: start: 20100923
  10. ARAVA [Concomitant]
     Dosage: 20 MG, QD
     Route: 048
  11. MOTRIN [Concomitant]
     Dosage: 800 MG, TID
     Route: 048
  12. VESICARE [Concomitant]
     Dosage: 6 MG, QD
     Route: 048
  13. CALCIUM CARBONATE W/VITAMIN D      /00944201/ [Concomitant]
     Dosage: 500 MG, TID
     Route: 048
  14. MEDROL [Concomitant]
     Dosage: 4 MG, UNK
     Route: 048
  15. MULTIVITAMIN [Concomitant]
     Dosage: UNK
     Route: 048

REACTIONS (5)
  - INJECTION SITE INDURATION [None]
  - COUGH [None]
  - INJECTION SITE SWELLING [None]
  - NON-CARDIAC CHEST PAIN [None]
  - INJECTION SITE ERYTHEMA [None]
